FAERS Safety Report 6012657-2 (Version None)
Quarter: 2008Q4

REPORT INFORMATION
  Report Type: 
  Country: None (occurrence: None)
  Receive Date: 20081218
  Receipt Date: 20081209
  Transmission Date: 20090506
  Serious: Yes (Life-Threatening)
  Sender: FDA-Public Use
  Company Number: US-MERCK-0812USA00968

PATIENT
  Sex: Female
  Weight: 68 kg

DRUGS (2)
  1. SINGULAIR [Suspect]
     Indication: MULTIPLE ALLERGIES
     Route: 048
     Dates: start: 20060316, end: 20080406
  2. SINGULAIR [Suspect]
     Indication: BRONCHITIS
     Route: 048
     Dates: start: 20060316, end: 20080406

REACTIONS (15)
  - ABDOMINAL DISTENSION [None]
  - ABNORMAL DREAMS [None]
  - ACTIVITIES OF DAILY LIVING IMPAIRED [None]
  - CONFUSIONAL STATE [None]
  - GASTROOESOPHAGEAL REFLUX DISEASE [None]
  - INSOMNIA [None]
  - LETHARGY [None]
  - MAJOR DEPRESSION [None]
  - MENTAL DISORDER [None]
  - SLEEP TERROR [None]
  - SOMNOLENCE [None]
  - SPEECH DISORDER [None]
  - THINKING ABNORMAL [None]
  - UNEVALUABLE EVENT [None]
  - WEIGHT INCREASED [None]
